FAERS Safety Report 19949507 (Version 1)
Quarter: 2021Q4

REPORT INFORMATION
  Report Type: Other
  Country: ES (occurrence: ES)
  Receive Date: 20211013
  Receipt Date: 20211013
  Transmission Date: 20220304
  Serious: Yes (Other)
  Sender: FDA-Public Use
  Company Number: ES-ROCHE-2608259

PATIENT

DRUGS (1)
  1. RITUXIMAB [Suspect]
     Active Substance: RITUXIMAB
     Indication: Immune system disorder
     Route: 042

REACTIONS (3)
  - Pneumonia bacterial [Unknown]
  - Hypogammaglobulinaemia [Unknown]
  - Off label use [Unknown]
